FAERS Safety Report 5980317-X (Version None)
Quarter: 2008Q4

REPORT INFORMATION
  Report Type: 
  Country: None (occurrence: None)
  Receive Date: 20081202
  Receipt Date: 20081202
  Transmission Date: 20090506
  Serious: Yes (Life-Threatening, Other)
  Sender: FDA-Public Use
  Company Number: None

PATIENT
  Age: 24 Year
  Sex: Female
  Weight: 88.905 kg

DRUGS (2)
  1. PROAIR HFA [Suspect]
     Indication: ASTHMA
     Dosage: 90 MCG ALBUTEROL HFA 134A 2 PUFFS INHAL
     Dates: start: 20081126, end: 20081126
  2. PROAIR HFA [Suspect]
     Indication: BRONCHITIS CHRONIC
     Dosage: 90 MCG ALBUTEROL HFA 134A 2 PUFFS INHAL
     Dates: start: 20081126, end: 20081126

REACTIONS (5)
  - ASTHMA [None]
  - CONDITION AGGRAVATED [None]
  - DRUG INEFFECTIVE [None]
  - PRODUCT QUALITY ISSUE [None]
  - VOMITING [None]
